FAERS Safety Report 8798971 (Version 3)
Quarter: 2013Q1

REPORT INFORMATION
  Report Type: Report from Study
  Country: US (occurrence: US)
  Receive Date: 20120920
  Receipt Date: 20130105
  Transmission Date: 20140127
  Serious: Yes (Life-Threatening, Other)
  Sender: FDA-Public Use
  Company Number: US-JNJFOC-20120907203

PATIENT
  Age: 74 Year
  Sex: Male
  Weight: 90.72 kg

DRUGS (11)
  1. XARELTO [Suspect]
     Indication: CEREBROVASCULAR ACCIDENT PROPHYLAXIS
     Route: 048
     Dates: start: 20120723, end: 20120913
  2. XARELTO [Suspect]
     Indication: ATRIAL FIBRILLATION
     Route: 048
     Dates: start: 20120723, end: 20120913
  3. ADVAIR [Concomitant]
     Indication: ASTHMA
  4. ADVAIR [Concomitant]
     Indication: CHRONIC OBSTRUCTIVE PULMONARY DISEASE
  5. LIPITOR [Concomitant]
     Indication: HYPERCHOLESTEROLAEMIA
  6. MAVIK [Concomitant]
     Indication: HYPERTENSION
  7. CARDIZEM [Concomitant]
     Indication: ATRIAL FIBRILLATION
  8. CARDIZEM [Concomitant]
     Indication: ATRIAL FIBRILLATION
     Dates: start: 20120720
  9. HYDROCHLOROTHIAZIDE [Concomitant]
     Indication: BLOOD PRESSURE
  10. SPIRIVA [Concomitant]
     Indication: CHRONIC OBSTRUCTIVE PULMONARY DISEASE
  11. DIGOXIN [Concomitant]
     Indication: ATRIAL FIBRILLATION
     Dates: start: 20120720

REACTIONS (1)
  - Anaemia [Recovering/Resolving]
